FAERS Safety Report 11112475 (Version 1)
Quarter: 2015Q2

REPORT INFORMATION
  Report Type: Spontaneous
  Country: US (occurrence: US)
  Receive Date: 20150514
  Receipt Date: 20150514
  Transmission Date: 20150821
  Serious: Yes (Other)
  Sender: FDA-Public Use
  Company Number: US-SUN PHARMACEUTICAL INDUSTRIES LTD-2015SUN01103

PATIENT
  Age: 48 Year
  Sex: Female

DRUGS (6)
  1. LITHIUM CARBONATE. [Suspect]
     Active Substance: LITHIUM CARBONATE
     Indication: MANIA
     Dosage: 600 MG, BID
     Route: 048
  2. LACTULOSE. [Interacting]
     Active Substance: LACTULOSE
     Indication: CONSTIPATION
     Dosage: 30 ML, RECEIVED 5 DOSES FOR 2 DAY PERIOD
     Route: 065
  3. BENAZEPRIL [Concomitant]
     Active Substance: BENAZEPRIL\BENAZEPRIL HYDROCHLORIDE
     Indication: HYPERTENSION
     Dosage: 20 MG DAILY
  4. QUETIAPINE [Concomitant]
     Active Substance: QUETIAPINE
     Indication: MANIA
     Dosage: 400 MG, BID
  5. LITHIUM CARBONATE. [Interacting]
     Active Substance: LITHIUM CARBONATE
     Dosage: 300 MG IN MORNING AND 600 MG IN THE EVENING
     Route: 048
  6. LITHIUM CARBONATE. [Interacting]
     Active Substance: LITHIUM CARBONATE
     Dosage: 900 MG, BID; ON HOSPITAL DAY 5
     Route: 048

REACTIONS (4)
  - Drug interaction [Recovered/Resolved]
  - Toxicity to various agents [Recovered/Resolved]
  - Somnolence [Unknown]
  - Tremor [Unknown]
